FAERS Safety Report 5826057-9 (Version None)
Quarter: 2008Q3

REPORT INFORMATION
  Report Type: 
  Country: None (occurrence: None)
  Receive Date: 20080729
  Receipt Date: 20080724
  Transmission Date: 20090109
  Serious: Yes (Death)
  Sender: FDA-Public Use
  Company Number: US-JNJFOC-20080706331

PATIENT
  Sex: Male
  Weight: 8.16 kg

DRUGS (1)
  1. CHILDREN TYLENOL PLUS MULTI SYMPTOM COLD [Suspect]
     Indication: NASOPHARYNGITIS

REACTIONS (1)
  - DRUG TOXICITY [None]
